FAERS Safety Report 4692746-5 (Version None)
Quarter: 2005Q2

REPORT INFORMATION
  Report Type: 
  Country: None (occurrence: None)
  Receive Date: 20050617
  Receipt Date: 20050608
  Transmission Date: 20051028
  Serious: Yes (Hospitalization)
  Sender: FDA-Public Use
  Company Number: CN-GLAXOSMITHKLINE-B0384026A

PATIENT
  Age: 69 Year
  Sex: Female

DRUGS (4)
  1. SEROXAT [Suspect]
     Dosage: 20MG PER DAY
     Route: 048
     Dates: start: 20050221
  2. BETALOC [Concomitant]
  3. EUTHYROX [Concomitant]
  4. LEVOTHYROXINE SODIUM [Concomitant]

REACTIONS (14)
  - BRAIN DAMAGE [None]
  - DIZZINESS [None]
  - EPISTAXIS [None]
  - HAEMATOMA [None]
  - HYPOACUSIS [None]
  - INJURY [None]
  - LOSS OF CONSCIOUSNESS [None]
  - MEMORY IMPAIRMENT [None]
  - MENTAL DISORDER [None]
  - SKULL FRACTURE [None]
  - SYNCOPE [None]
  - TINNITUS [None]
  - VISUAL ACUITY REDUCED [None]
  - VOMITING [None]
